FAERS Safety Report 8917157 (Version 1)
Quarter: 2012Q4

REPORT INFORMATION
  Report Type: 
  Country: US (occurrence: US)
  Receive Date: 20121120
  Receipt Date: 20121120
  Transmission Date: 20130627
  Serious: No
  Sender: FDA-Public Use
  Company Number: US-PFIZER INC-2012285786

PATIENT
  Age: 58 Year
  Sex: Female
  Weight: 51 kg

DRUGS (2)
  1. ESTRING [Suspect]
     Indication: MENOPAUSAL SYMPTOMS
     Dosage: 2 mg, every 3 months
     Route: 067
     Dates: start: 201204, end: 201210
  2. ESTRING [Suspect]
     Indication: VULVOVAGINAL ATROPHY

REACTIONS (1)
  - Muscle spasms [Recovered/Resolved]
